FAERS Safety Report 7750526-8 (Version None)
Quarter: 2011Q3

REPORT INFORMATION
  Report Type: 
  Country: None (occurrence: None)
  Receive Date: 20110914
  Receipt Date: 20110902
  Transmission Date: 20111222
  Serious: Yes (Hospitalization)
  Sender: FDA-Public Use
  Company Number: US-BAYER-2011-081237

PATIENT
  Sex: Male
  Weight: 71.8 kg

DRUGS (4)
  1. SARGRAMOSTIM [Suspect]
     Dosage: UNK
     Dates: start: 20110901
  2. MDX-010 [Suspect]
     Dosage: UNK
     Dates: start: 20110901
  3. SARGRAMOSTIM [Suspect]
     Indication: MALIGNANT MELANOMA
     Dosage: 1750 ?G, UNK
     Route: 058
     Dates: start: 20110715, end: 20110817
  4. MDX-010 [Suspect]
     Indication: MALIGNANT MELANOMA
     Dosage: 807 MG, UNK
     Route: 042
     Dates: start: 20110715, end: 20110804

REACTIONS (2)
  - FATIGUE [None]
  - EMBOLISM [None]
